FAERS Safety Report 8565578-5 (Version None)
Quarter: 2012Q3

REPORT INFORMATION
  Report Type: 
  Country: None (occurrence: None)
  Receive Date: 20120803
  Receipt Date: 20120726
  Transmission Date: 20120928
  Serious: Yes (Other)
  Sender: FDA-Public Use
  Company Number: GB-PFIZER INC-2012110693

PATIENT
  Sex: Male

DRUGS (3)
  1. EFFEXOR XR [Suspect]
     Dosage: 100MG/150 MG, 1X/DAY
  2. EFFEXOR XR [Suspect]
     Dosage: 225 MG, 1X (12 HR RELEASE) CAPSULE
  3. EFFEXOR [Suspect]
     Dosage: 75 MG, 1X/DAY

REACTIONS (12)
  - HALLUCINATION [None]
  - AGGRESSION [None]
  - WHITE BLOOD CELL COUNT ABNORMAL [None]
  - PHOTOPHOBIA [None]
  - STRESS [None]
  - FEELING ABNORMAL [None]
  - HYPERACUSIS [None]
  - PLATELET DISORDER [None]
  - ANTISOCIAL BEHAVIOUR [None]
  - WITHDRAWAL SYNDROME [None]
  - CONVULSION [None]
  - HEADACHE [None]
